FAERS Safety Report 17170887 (Version 4)
Quarter: 2021Q2

REPORT INFORMATION
  Report Type: Other
  Country: DE (occurrence: DE)
  Receive Date: 20191218
  Receipt Date: 20210522
  Transmission Date: 20210716
  Serious: Yes (Other)
  Sender: FDA-Public Use
  Company Number: DE-ROCHE-2325379

PATIENT
  Age: 35 Year
  Sex: Female

DRUGS (7)
  1. METFORMIN [Concomitant]
     Active Substance: METFORMIN HYDROCHLORIDE
  2. OCREVUS [Suspect]
     Active Substance: OCRELIZUMAB
     Route: 042
     Dates: start: 20190131
  3. OCREVUS [Suspect]
     Active Substance: OCRELIZUMAB
     Dosage: FASTER INFUSION RATE (NOS)
     Route: 042
     Dates: start: 20200701
  4. L?THYROXIN [Concomitant]
     Active Substance: LEVOTHYROXINE SODIUM
  5. OCREVUS [Suspect]
     Active Substance: OCRELIZUMAB
     Indication: RELAPSING-REMITTING MULTIPLE SCLEROSIS
     Route: 042
     Dates: start: 20180116
  6. OCREVUS [Suspect]
     Active Substance: OCRELIZUMAB
     Route: 042
  7. OCREVUS [Suspect]
     Active Substance: OCRELIZUMAB
     Route: 042
     Dates: start: 20180131

REACTIONS (8)
  - Herpes zoster [Recovered/Resolved]
  - Pyrexia [Recovered/Resolved]
  - Headache [Recovered/Resolved]
  - Body temperature increased [Recovered/Resolved]
  - Tension headache [Not Recovered/Not Resolved]
  - Pruritus [Recovered/Resolved]
  - Varicella zoster virus infection [Not Recovered/Not Resolved]
  - Pain in extremity [Recovered/Resolved]

NARRATIVE: CASE EVENT DATE: 20180116
